FAERS Safety Report 7812943-7 (Version None)
Quarter: 2011Q4

REPORT INFORMATION
  Report Type: 
  Country: None (occurrence: None)
  Receive Date: 20111011
  Receipt Date: 20110928
  Transmission Date: 20120403
  Serious: Yes (Hospitalization)
  Sender: FDA-Public Use
  Company Number: B0753334A

PATIENT
  Age: 36 Year
  Sex: Male

DRUGS (5)
  1. ACETAMINOPHEN [Concomitant]
  2. QUETIAPINE [Concomitant]
  3. FLUTICASONE PROPIONATE [Concomitant]
  4. DICLOFENAC [Concomitant]
  5. ALBUTEROL SULFATE [Suspect]
     Dosage: FOUR TIMES PER DAY, ORAL
     Route: 048

REACTIONS (15)
  - BLOOD GLUCOSE INCREASED [None]
  - RESPIRATORY ALKALOSIS [None]
  - LACTIC ACIDOSIS [None]
  - QRS AXIS ABNORMAL [None]
  - SPEECH DISORDER [None]
  - CONDITION AGGRAVATED [None]
  - TOXICITY TO VARIOUS AGENTS [None]
  - LOWER RESPIRATORY TRACT INFLAMMATION [None]
  - BLOOD POTASSIUM DECREASED [None]
  - CHEST PAIN [None]
  - BUNDLE BRANCH BLOCK RIGHT [None]
  - ASTHMA [None]
  - VENTRICULAR HYPERTROPHY [None]
  - METABOLIC ACIDOSIS [None]
  - ANXIETY [None]
